FAERS Safety Report 6591742-0 (Version None)
Quarter: 2010Q1

REPORT INFORMATION
  Report Type: 
  Country: None (occurrence: None)
  Receive Date: 20100221
  Receipt Date: 20090710
  Transmission Date: 20100710
  Serious: No
  Sender: FDA-Public Use
  Company Number: US-ALLERGAN-0907937US

PATIENT
  Age: 43 Year
  Sex: Male
  Weight: 79.365 kg

DRUGS (4)
  1. BOTOX [Suspect]
     Indication: MUSCLE SPASTICITY
     Dosage: 200 UNITS, SINGLE
     Route: 030
     Dates: start: 20090518, end: 20090518
  2. BOTOX [Suspect]
     Dosage: 100 UNITS, SINGLE
     Route: 030
     Dates: start: 20090518, end: 20090518
  3. BOTOX [Suspect]
     Dosage: 200 UNITS, SINGLE
     Route: 030
     Dates: start: 20090201, end: 20090201
  4. SOMA [Concomitant]
     Indication: BACK PAIN
     Dosage: 350 MG, TID
     Route: 048

REACTIONS (2)
  - INJECTION SITE OEDEMA [None]
  - INJECTION SITE PAIN [None]
